FAERS Safety Report 15371006 (Version 2)
Quarter: 2018Q3

REPORT INFORMATION
  Report Type: Spontaneous
  Country: AU (occurrence: AU)
  Receive Date: 20180911
  Receipt Date: 20180914
  Transmission Date: 20181010
  Serious: Yes (Hospitalization, Other)
  Sender: FDA-Public Use
  Company Number: AU-GLAXOSMITHKLINE-AU2018GSK157974

PATIENT
  Sex: Male

DRUGS (1)
  1. TAFENOQUINE [Suspect]
     Active Substance: TAFENOQUINE
     Indication: PRODUCT USED FOR UNKNOWN INDICATION
     Dosage: UNK

REACTIONS (14)
  - Feeling abnormal [Unknown]
  - Irritable bowel syndrome [Unknown]
  - Depression [Unknown]
  - Vertigo [Not Recovered/Not Resolved]
  - Anxiety [Unknown]
  - Mental disorder [Unknown]
  - Deafness [Unknown]
  - Tinnitus [Unknown]
  - Emotional distress [Unknown]
  - Ill-defined disorder [Unknown]
  - Dizziness [Unknown]
  - Anger [Unknown]
  - Post-traumatic stress disorder [Not Recovered/Not Resolved]
  - Emotional disorder [Not Recovered/Not Resolved]

NARRATIVE: CASE EVENT DATE: 2016
